FAERS Safety Report 25568927 (Version 1)
Quarter: 2025Q3

REPORT INFORMATION
  Report Type: Spontaneous
  Country: US (occurrence: US)
  Receive Date: 20250716
  Receipt Date: 20250716
  Transmission Date: 20251021
  Serious: No
  Sender: GALPHARM INTERNATIONAL
  Company Number: US-PERRIGO-25US004969

PATIENT
  Sex: Male

DRUGS (1)
  1. MINOXIDIL [Suspect]
     Active Substance: MINOXIDIL
     Indication: Product used for unknown indication
     Route: 061
     Dates: start: 202502

REACTIONS (4)
  - Hair growth abnormal [Unknown]
  - Drug ineffective [Unknown]
  - Product administered at inappropriate site [Unknown]
  - Underdose [Unknown]

NARRATIVE: CASE EVENT DATE: 20250201
